FAERS Safety Report 6538900-9 (Version None)
Quarter: 2010Q1

REPORT INFORMATION
  Report Type: 
  Country: None (occurrence: None)
  Receive Date: 20100115
  Receipt Date: 20100113
  Transmission Date: 20100710
  Serious: Yes (Hospitalization, Other)
  Sender: FDA-Public Use
  Company Number: GB-ROXANE LABORATORIES, INC.-2010-RO-00019RO

PATIENT
  Age: 72 Year
  Sex: Male

DRUGS (13)
  1. DIGOXIN [Suspect]
     Indication: CARDIAC FAILURE CHRONIC
     Dosage: 62.5 MCG
  2. DIGOXIN [Suspect]
     Indication: ATRIAL FIBRILLATION
  3. FUROSEMIDE [Suspect]
  4. AMIODARONE HCL [Suspect]
  5. LANSOPRAZOLE [Suspect]
  6. SIMVASTATIN [Suspect]
  7. LEVOTHYROXINE SODIUM [Suspect]
  8. GLIMEPIRIDE [Suspect]
  9. EZETIMIBE [Suspect]
  10. DOXAZOSIN [Suspect]
  11. ALPHA-1-CALCIDOL [Suspect]
  12. CLOPIDOGREL [Suspect]
  13. NIFEDIPINE [Suspect]

REACTIONS (3)
  - GENERAL PHYSICAL HEALTH DETERIORATION [None]
  - RENAL FAILURE [None]
  - THERAPEUTIC AGENT TOXICITY [None]
